FAERS Safety Report 21504072 (Version 1)
Quarter: 2022Q4

REPORT INFORMATION
  Report Type: Spontaneous
  Country: US (occurrence: None)
  Receive Date: 20221025
  Receipt Date: 20221025
  Transmission Date: 20230113
  Serious: Yes (Other)
  Sender: FDA-Public Use
  Company Number: None

PATIENT
  Age: 39 Year
  Sex: Female
  Weight: 62.9 kg

DRUGS (5)
  1. INFED [Suspect]
     Active Substance: IRON DEXTRAN
     Indication: Iron deficiency anaemia
     Dosage: FREQUENCY : ONCE;?
     Route: 042
     Dates: start: 20221012, end: 20221012
  2. L-Methionine 1,000 mg PO daily [Concomitant]
  3. L-arginine 1,000 mg PO daily [Concomitant]
  4. Zinc Acetate 25 mg PO daily [Concomitant]
  5. Vitamin C 1,500 mg PO daily [Concomitant]

REACTIONS (1)
  - Dyspnoea [None]

NARRATIVE: CASE EVENT DATE: 20221012
